FAERS Safety Report 7457940-9 (Version None)
Quarter: 2011Q2

REPORT INFORMATION
  Report Type: 
  Country: None (occurrence: None)
  Receive Date: 20110502
  Receipt Date: 20110502
  Transmission Date: 20111010
  Serious: No
  Sender: FDA-Public Use
  Company Number: None

PATIENT
  Sex: Male
  Weight: 112.2 kg

DRUGS (1)
  1. INTRON A [Suspect]
     Dosage: 920 MU

REACTIONS (1)
  - NO ADVERSE EVENT [None]
